FAERS Safety Report 4681103-3 (Version None)
Quarter: 2005Q2

REPORT INFORMATION
  Report Type: 
  Country: None (occurrence: None)
  Receive Date: 20050603
  Receipt Date: 20050531
  Transmission Date: 20051028
  Serious: Yes (Hospitalization)
  Sender: FDA-Public Use
  Company Number: FR-MERCK-0505FRA00119

PATIENT
  Age: 82 Year
  Sex: Female

DRUGS (6)
  1. FOSAMAX [Suspect]
     Route: 048
     Dates: end: 20050414
  2. ALTHIAZIDE AND SPIRONOLACTONE [Suspect]
     Route: 048
     Dates: end: 20050414
  3. DIGOXIN [Suspect]
     Route: 048
     Dates: end: 20050414
  4. CITALOPRAM HYDROBROMIDE [Suspect]
     Route: 048
     Dates: start: 20050410, end: 20050414
  5. OMEPRAZOLE SODIUM [Suspect]
     Route: 048
     Dates: end: 20050414
  6. CALCIUM CARBONATE [Suspect]
     Route: 048
     Dates: end: 20050414

REACTIONS (2)
  - HYPOKALAEMIA [None]
  - HYPONATRAEMIA [None]
